FAERS Safety Report 6414088-X (Version None)
Quarter: 2009Q4

REPORT INFORMATION
  Report Type: 
  Country: None (occurrence: None)
  Receive Date: 20091022
  Receipt Date: 20091022
  Transmission Date: 20100525
  Serious: Yes (Other)
  Sender: FDA-Public Use
  Company Number: None

PATIENT
  Sex: Female
  Weight: 20.2758 kg

DRUGS (1)
  1. ADDERALL 5 [Suspect]
     Indication: ATTENTION DEFICIT/HYPERACTIVITY DISORDER
     Dosage: 5 MG TID P.O.
     Route: 048
     Dates: start: 20091010, end: 20091013

REACTIONS (4)
  - ABNORMAL BEHAVIOUR [None]
  - HUMAN BITE [None]
  - INTENTIONAL SELF-INJURY [None]
  - PRODUCT SUBSTITUTION ISSUE [None]
